FAERS Safety Report 9741582 (Version 2)
Quarter: 2014Q2

REPORT INFORMATION
  Report Type: Report from Study
  Country: NL (occurrence: NL)
  Receive Date: 20131210
  Receipt Date: 20140505
  Transmission Date: 20141212
  Serious: Yes (Other)
  Sender: FDA-Public Use
  Company Number: NL-BIOGENIDEC-2013BI116962

PATIENT
  Age: 53 Year
  Sex: Female

DRUGS (5)
  1. AVONEX [Suspect]
     Indication: MULTIPLE SCLEROSIS
     Route: 030
     Dates: start: 19990101
  2. CLONIDINE [Concomitant]
  3. METOPROLOL [Concomitant]
  4. IBUPROFEN [Concomitant]
  5. CYMBALTA [Concomitant]

REACTIONS (5)
  - Granulomatosis with polyangiitis [Unknown]
  - Chronic obstructive pulmonary disease [Recovered/Resolved]
  - Ear disorder [Unknown]
  - Nasal disorder [Unknown]
  - Pharyngeal disorder [Unknown]
